FAERS Safety Report 15107140 (Version 1)
Quarter: 2018Q3

REPORT INFORMATION
  Report Type: Spontaneous
  Country: US (occurrence: US)
  Receive Date: 20180704
  Receipt Date: 20180704
  Transmission Date: 20181010
  Serious: No
  Sender: FDA-Public Use
  Company Number: US-PFIZER INC-2018009026

PATIENT
  Age: 57 Year
  Sex: Female
  Weight: 71.2 kg

DRUGS (2)
  1. PARAPLATIN [Concomitant]
     Active Substance: CARBOPLATIN
     Dosage: UNK
  2. DOCETAXEL. [Suspect]
     Active Substance: DOCETAXEL
     Indication: BREAST CANCER
     Dosage: UNK, CYCLIC
     Dates: start: 20110217, end: 20110602

REACTIONS (2)
  - Alopecia [Recovering/Resolving]
  - Madarosis [Recovering/Resolving]

NARRATIVE: CASE EVENT DATE: 201103
